FAERS Safety Report 19600475 (Version 1)
Quarter: 2021Q3

REPORT INFORMATION
  Report Type: Spontaneous
  Country: US (occurrence: US)
  Receive Date: 20210723
  Receipt Date: 20210723
  Transmission Date: 20211014
  Serious: Yes (Other)
  Sender: FDA-Public Use
  Company Number: US-GLAXOSMITHKLINE-US2021GSK153013

PATIENT
  Sex: Female

DRUGS (2)
  1. RANITIDINE. [Suspect]
     Active Substance: RANITIDINE
     Indication: GALLBLADDER DISORDER
     Dosage: UNK
     Route: 065
     Dates: start: 201108, end: 201501
  2. RANITIDINE. [Suspect]
     Active Substance: RANITIDINE
     Indication: GALLBLADDER DISORDER
     Dosage: UNK
     Route: 065
     Dates: start: 201108, end: 201501

REACTIONS (1)
  - Breast cancer [Unknown]
